FAERS Safety Report 6374078-2 (Version None)
Quarter: 2009Q3

REPORT INFORMATION
  Report Type: 
  Country: None (occurrence: None)
  Receive Date: 20090924
  Receipt Date: 20090630
  Transmission Date: 20100115
  Serious: No
  Sender: FDA-Public Use
  Company Number: US-ASTRAZENECA-2009UW18471

PATIENT
  Sex: Female

DRUGS (1)
  1. SEROQUEL [Suspect]
     Route: 048

REACTIONS (6)
  - FURUNCLE [None]
  - HORDEOLUM [None]
  - NASAL DRYNESS [None]
  - ONYCHOCLASIS [None]
  - THIRST [None]
  - WEIGHT INCREASED [None]
